FAERS Safety Report 7391215-1 (Version None)
Quarter: 2011Q2

REPORT INFORMATION
  Report Type: 
  Country: None (occurrence: None)
  Receive Date: 20110404
  Receipt Date: 20100302
  Transmission Date: 20111010
  Serious: Yes (Other)
  Sender: FDA-Public Use
  Company Number: US-PFIZER INC-2010027039

PATIENT
  Sex: Female

DRUGS (1)
  1. GENOTROPIN [Suspect]
     Indication: INSULIN-LIKE GROWTH FACTOR DECREASED
     Dosage: UNK MG, UNK
     Route: 051
     Dates: start: 20100101

REACTIONS (4)
  - JOINT STIFFNESS [None]
  - WEIGHT DECREASED [None]
  - DRUG EFFECT DECREASED [None]
  - FATIGUE [None]
